FAERS Safety Report 9333214 (Version 2)
Quarter: 2013Q2

REPORT INFORMATION
  Report Type: Spontaneous
  Country: US (occurrence: US)
  Receive Date: 20130606
  Receipt Date: 20130623
  Transmission Date: 20140414
  Serious: No
  Sender: FDA-Public Use
  Company Number: US-TEVA-407506USA

PATIENT
  Sex: Male

DRUGS (1)
  1. QNASL [Suspect]
     Route: 045
     Dates: end: 201209

REACTIONS (1)
  - Nasal septum perforation [Unknown]
